FAERS Safety Report 7847203-1 (Version None)
Quarter: 2011Q4

REPORT INFORMATION
  Report Type: 
  Country: None (occurrence: None)
  Receive Date: 20111025
  Receipt Date: 20110523
  Transmission Date: 20120403
  Serious: No
  Sender: FDA-Public Use
  Company Number: US-ALLERGAN-1107505US

PATIENT
  Age: 53 Year
  Sex: Female

DRUGS (2)
  1. REFRESH PLUS [Suspect]
     Indication: BLEPHARITIS
     Dosage: UNK
     Route: 047
     Dates: start: 20110511, end: 20110522
  2. FML [Suspect]
     Indication: BLEPHARITIS
     Dosage: UNK
     Route: 047
     Dates: start: 20110511, end: 20110522

REACTIONS (2)
  - PERIORBITAL OEDEMA [None]
  - CUTIS LAXA [None]
